FAERS Safety Report 6071738-8 (Version None)
Quarter: 2009Q1

REPORT INFORMATION
  Report Type: 
  Country: None (occurrence: None)
  Receive Date: 20090209
  Receipt Date: 20090209
  Transmission Date: 20090719
  Serious: Yes (Hospitalization)
  Sender: FDA-Public Use
  Company Number: None

PATIENT
  Sex: Female
  Weight: 73.9363 kg

DRUGS (1)
  1. BYETTA [Suspect]
     Dosage: 10MCG BID SQ
     Route: 058
     Dates: start: 20080301, end: 20090107

REACTIONS (1)
  - PANCREATITIS [None]
